FAERS Safety Report 11656376 (Version 1)
Quarter: 2015Q4

REPORT INFORMATION
  Report Type: Spontaneous
  Country: US (occurrence: US)
  Receive Date: 20151023
  Receipt Date: 20151023
  Transmission Date: 20160304
  Serious: Yes (Other)
  Sender: FDA-Public Use
  Company Number: US-PRINSTON PHARMACEUTICAL INC.-2015PRN00094

PATIENT
  Sex: Female

DRUGS (26)
  1. ECOTRIN [Concomitant]
     Active Substance: ASPIRIN
  2. ALENDRONATE [Concomitant]
     Active Substance: ALENDRONATE SODIUM
  3. LOSARTAN. [Concomitant]
     Active Substance: LOSARTAN
  4. UNSPECIFIED HAIR/SKIN/NAILS TABLETS [Concomitant]
  5. UNSPECIFIED STOOL SOFTENERS [Concomitant]
  6. METOPROLOL [Concomitant]
     Active Substance: METOPROLOL
  7. MONTELUKAST [Concomitant]
     Active Substance: MONTELUKAST SODIUM
  8. UNSPECIFIED ALLERGY MEDICATIONS [Concomitant]
  9. VITAMIN D3 [Concomitant]
     Active Substance: CHOLECALCIFEROL
  10. FISH OIL [Concomitant]
     Active Substance: FISH OIL
  11. REQUIP XL [Suspect]
     Active Substance: ROPINIROLE HYDROCHLORIDE
     Dosage: 8 MG, 1X/DAY
  12. PRAVASTATIN [Concomitant]
     Active Substance: PRAVASTATIN\PRAVASTATIN SODIUM
  13. ASCORBIC ACID. [Concomitant]
     Active Substance: ASCORBIC ACID
  14. CAROTENOIDS [Concomitant]
     Active Substance: CAROTENOIDS
  15. COPPER [Concomitant]
     Active Substance: COPPER
  16. REQUIP XL [Suspect]
     Active Substance: ROPINIROLE HYDROCHLORIDE
     Indication: BACK DISORDER
     Route: 048
  17. TOPAMAX [Concomitant]
     Active Substance: TOPIRAMATE
  18. PRESERVISION [Concomitant]
     Active Substance: MINERALS\VITAMINS
  19. IPRATROPIUM BROMIDE. [Concomitant]
     Active Substance: IPRATROPIUM BROMIDE
  20. ROPINIROLE HYDROCHLORIDE. [Suspect]
     Active Substance: ROPINIROLE HYDROCHLORIDE
     Indication: BACK DISORDER
     Dosage: 1.5 MG, 1X/DAY
     Dates: start: 2014
  21. OMEGA-3 MARINE TRIGLYCERIDES [Concomitant]
     Active Substance: FISH OIL
  22. COMBIVENT [Concomitant]
     Active Substance: ALBUTEROL SULFATE\IPRATROPIUM BROMIDE
     Dosage: UNK
  23. BUTALBITAL + PARACETAMOL [Concomitant]
  24. LEVOTHYROXINE. [Concomitant]
     Active Substance: LEVOTHYROXINE
  25. TRAMADOL. [Concomitant]
     Active Substance: TRAMADOL
  26. TOCOPHEROL [Concomitant]
     Active Substance: TOCOPHEROL

REACTIONS (4)
  - Spinal fracture [Unknown]
  - Transient ischaemic attack [Unknown]
  - Neuralgia [Unknown]
  - Family stress [Recovering/Resolving]
